FAERS Safety Report 17024400 (Version 1)
Quarter: 2019Q4

REPORT INFORMATION
  Report Type: Spontaneous
  Country: FR (occurrence: FR)
  Receive Date: 20191113
  Receipt Date: 20191113
  Transmission Date: 20200122
  Serious: Yes (Hospitalization)
  Sender: FDA-Public Use
  Company Number: FR-TEVA-2019-FR-1136086

PATIENT
  Age: 23 Year
  Sex: Female

DRUGS (2)
  1. TRAMADOL (CHLORHYDRATE DE) [Suspect]
     Active Substance: TRAMADOL HYDROCHLORIDE
     Dosage: 400 MG PER DAY
     Route: 048
  2. DAFALGAN CODEINE [Suspect]
     Active Substance: ACETAMINOPHEN\CODEINE PHOSPHATE
     Dosage: 8 DOSAGE FORMS PER DAY
     Route: 048

REACTIONS (3)
  - Drug detoxification [Recovering/Resolving]
  - Drug dependence [Recovering/Resolving]
  - Withdrawal syndrome [Recovering/Resolving]
